FAERS Safety Report 7267592-9 (Version None)
Quarter: 2011Q1

REPORT INFORMATION
  Report Type: 
  Country: None (occurrence: None)
  Receive Date: 20110121
  Receipt Date: 20110107
  Transmission Date: 20110831
  Serious: Yes (Hospitalization)
  Sender: FDA-Public Use
  Company Number: AUR-APL-2011-00236

PATIENT
  Age: 64 Year
  Sex: Male

DRUGS (5)
  1. METFORMIN HCL [Suspect]
     Dosage: 500MG - QD - ORAL
     Route: 048
     Dates: start: 20090407, end: 20110105
  2. CANDESARTAN [Concomitant]
  3. BENDROFLUAZIDE [Suspect]
     Dosage: 25MG - ORAL
     Route: 048
     Dates: start: 20090813, end: 20110105
  4. SUNITINIB MALATE [Suspect]
     Indication: URETHRAL CANCER
     Dosage: 25MG - ORAL
     Route: 048
     Dates: start: 20100911, end: 20110105
  5. AMLODIPINE [Suspect]
     Dosage: 10MG - DAILY - ORAL
     Route: 048
     Dates: start: 20090305, end: 20110105

REACTIONS (4)
  - INFLUENZA [None]
  - PYREXIA [None]
  - INFLUENZA LIKE ILLNESS [None]
  - HYPOTENSION [None]
